FAERS Safety Report 9410924 (Version 1)
Quarter: 2013Q3

REPORT INFORMATION
  Report Type: Spontaneous
  Country: US (occurrence: US)
  Receive Date: 20130719
  Receipt Date: 20130719
  Transmission Date: 20140515
  Serious: No
  Sender: FDA-Public Use
  Company Number: US-PFIZER INC-2013211154

PATIENT
  Age: 68 Year
  Sex: Female

DRUGS (6)
  1. LYRICA [Suspect]
     Indication: NEUROPATHY PERIPHERAL
     Dosage: 50 MG, 1X/DAY
     Route: 048
     Dates: start: 20130604, end: 201306
  2. LYRICA [Suspect]
     Dosage: 50 MG, 2X/DAY
     Route: 048
     Dates: start: 201306
  3. LYRICA [Suspect]
     Dosage: UNK
     Route: 048
     Dates: end: 20130709
  4. AZOR [Concomitant]
     Indication: BLOOD PRESSURE ABNORMAL
     Dosage: AMLODIPINE 5MG/ OLMESARTAN MEDOXOMIL 20MG, 1X/DAY
  5. PRAVASTATIN [Concomitant]
     Indication: BLOOD CHOLESTEROL ABNORMAL
     Dosage: 140 MG, 1X/DAY
  6. PANTOPRAZOLE [Concomitant]
     Indication: GASTROOESOPHAGEAL REFLUX DISEASE
     Dosage: 140 MG, 1X/DAY

REACTIONS (10)
  - Off label use [Unknown]
  - Oedema peripheral [Recovering/Resolving]
  - Visual impairment [Unknown]
  - Fatigue [Unknown]
  - Disturbance in attention [Unknown]
  - Dizziness [Unknown]
  - Impaired driving ability [Unknown]
  - Headache [Unknown]
  - Migraine [Unknown]
  - Neuropathy peripheral [Unknown]
